FAERS Safety Report 13321934 (Version 1)
Quarter: 2017Q1

REPORT INFORMATION
  Report Type: Spontaneous
  Country: FR (occurrence: FR)
  Receive Date: 20170310
  Receipt Date: 20170310
  Transmission Date: 20170428
  Serious: Yes (Other)
  Sender: FDA-Public Use
  Company Number: FR-PFIZER INC-2017098839

PATIENT
  Age: 42 Year
  Sex: Female

DRUGS (11)
  1. DOCETAXEL HOSPIRA [Suspect]
     Active Substance: DOCETAXEL
     Indication: BREAST CANCER
     Dosage: 75 MG/M2, CYCLIC (135 MG FOR CYCLE 1)
     Route: 042
     Dates: start: 20161115, end: 20161115
  2. CARBOPLATINE HOSPIRA [Suspect]
     Active Substance: CARBOPLATIN
     Indication: BREAST CANCER
     Dosage: 990 MG, CYCLIC
     Route: 042
     Dates: start: 20161115, end: 20161115
  3. HERCEPTIN [Suspect]
     Active Substance: TRASTUZUMAB
     Dosage: 6 MG/KG, CYCLIC (476 MG FOR CYCLE 4)
     Route: 042
     Dates: start: 20170117, end: 20170117
  4. CARBOPLATINE HOSPIRA [Suspect]
     Active Substance: CARBOPLATIN
     Dosage: 730 MG, CYCLIC
     Route: 042
     Dates: start: 20161206, end: 20161206
  5. DOCETAXEL HOSPIRA [Suspect]
     Active Substance: DOCETAXEL
     Dosage: 75 MG/M2, CYCLIC (135 MG)
     Route: 042
     Dates: start: 20161206, end: 20161206
  6. DOCETAXEL HOSPIRA [Suspect]
     Active Substance: DOCETAXEL
     Dosage: 75 MG/M2 , CYCLIC (140 MG)
     Route: 042
     Dates: start: 20170117, end: 20170117
  7. HERCEPTIN [Suspect]
     Active Substance: TRASTUZUMAB
     Indication: BREAST CANCER
     Dosage: 8 MG/KG, CYCLIC (598 MG FOR CYCLE 1)
     Route: 042
     Dates: start: 20161115, end: 20161115
  8. HERCEPTIN [Suspect]
     Active Substance: TRASTUZUMAB
     Dosage: 6 MG/KG, CYCLIC
     Route: 042
     Dates: start: 20161206, end: 20161206
  9. HERCEPTIN [Suspect]
     Active Substance: TRASTUZUMAB
     Dosage: 6 MG/KG, CYCLIC (446 MG FOR CYCLE 3)
     Route: 042
     Dates: start: 20161227, end: 20161227
  10. DOCETAXEL HOSPIRA [Suspect]
     Active Substance: DOCETAXEL
     Dosage: 75 MG/M2, CYCLIC (135 MG)
     Route: 042
     Dates: start: 20161227, end: 20161227
  11. CARBOPLATINE HOSPIRA [Suspect]
     Active Substance: CARBOPLATIN
     Dosage: 40 MG, CYCLIC
     Route: 042
     Dates: start: 20161227, end: 20161227

REACTIONS (5)
  - Nausea [Recovered/Resolved]
  - Diarrhoea [Recovered/Resolved]
  - Neutropenia [Recovered/Resolved]
  - Vomiting [Recovered/Resolved]
  - Abdominal pain [Recovered/Resolved]

NARRATIVE: CASE EVENT DATE: 20161118
